FAERS Safety Report 25500455 (Version 1)
Quarter: 2025Q2

REPORT INFORMATION
  Report Type: Spontaneous
  Country: US (occurrence: None)
  Receive Date: 20250629
  Receipt Date: 20250629
  Transmission Date: 20250717
  Serious: Yes (Life-Threatening, Hospitalization, Disabling, Other)
  Sender: FDA-CTU
  Company Number: None

PATIENT
  Age: 48 Year
  Sex: Female
  Weight: 121.5 kg

DRUGS (2)
  1. OZEMPIC [Suspect]
     Active Substance: SEMAGLUTIDE
     Indication: Glucose tolerance impaired
     Route: 058
     Dates: start: 20230127, end: 20230417
  2. OZEMPIC [Suspect]
     Active Substance: SEMAGLUTIDE
     Indication: Obesity

REACTIONS (2)
  - Pancreatitis [None]
  - Therapy cessation [None]

NARRATIVE: CASE EVENT DATE: 20230417
